FAERS Safety Report 8558234-0 (Version None)
Quarter: 2012Q3

REPORT INFORMATION
  Report Type: 
  Country: None (occurrence: None)
  Receive Date: 20120801
  Receipt Date: 20120723
  Transmission Date: 20120928
  Serious: Yes (Hospitalization, Other)
  Sender: FDA-Public Use
  Company Number: US-JNJFOC-20120713265

PATIENT
  Sex: Female
  Weight: 87.8 kg

DRUGS (42)
  1. VELCADE [Suspect]
     Indication: MANTLE CELL LYMPHOMA
     Route: 042
     Dates: start: 20120226
  2. MESNA [Suspect]
     Indication: MANTLE CELL LYMPHOMA
     Dosage: 1122MG IN NORMAL SALINE 2000 ML OVER 24 HOURS DAILY FOR 3 DAYS ON DAYS 2-4
     Route: 042
  3. CYTARABINE [Suspect]
     Indication: MANTLE CELL LYMPHOMA
     Route: 065
  4. SODIUM CHLORIDE [Concomitant]
     Route: 042
     Dates: start: 20120401
  5. TRAMADOL HCL [Concomitant]
     Dosage: AS NEEDED
     Route: 048
     Dates: start: 20120329
  6. LEUCOVORIN CALCIUM [Concomitant]
     Route: 048
  7. LEUCOVORIN CALCIUM [Concomitant]
     Route: 048
  8. UNKNOWN MEDICATION [Concomitant]
     Dosage: 1EA
     Route: 065
     Dates: start: 20120329
  9. MORPHINE SULFATE [Concomitant]
     Dosage: AS NEEDED
     Route: 042
     Dates: start: 20120329
  10. SODIUM CHLORIDE [Concomitant]
     Dosage: AS NEEDED 10 HOURS
     Route: 042
     Dates: start: 20120329
  11. NEUPOGEN [Concomitant]
     Route: 058
  12. ZOFRAN [Concomitant]
     Indication: VOMITING
     Dosage: AS NEEDED
     Route: 048
  13. SENNOSIDES-DOCUSATE SODIUM [Concomitant]
     Indication: CONSTIPATION
     Dosage: AS NEEDED (ONCE IN EVERY 12 HOUR)
     Route: 048
     Dates: start: 20120331
  14. ONDANSETRON HCL [Concomitant]
     Dosage: AS NEEDED 31 DAYS
     Route: 042
     Dates: start: 20120329
  15. POTASSIUM CHLORIDE [Concomitant]
     Route: 065
     Dates: start: 20120329
  16. SODIUM CHLORIDE [Concomitant]
     Route: 042
     Dates: start: 20120330
  17. HEPARIN [Concomitant]
     Route: 042
     Dates: start: 20120401
  18. ZOFRAN [Concomitant]
     Indication: NAUSEA
     Dosage: AS NEEDED
     Route: 048
  19. SODIUM BICARBONATE [Concomitant]
     Route: 049
     Dates: start: 20120330
  20. MEPERIDINE HCL [Concomitant]
     Route: 042
  21. DOXORUBICIN HYDROCHLORIDE [Suspect]
     Indication: MANTLE CELL LYMPHOMA
     Dosage: 94 MG OVER 15 MINUTES FOR 1 DOSE ON DAY 5
     Route: 042
  22. CYCLOPHOSPHAMIDE [Suspect]
     Indication: MANTLE CELL LYMPHOMA
     Route: 065
  23. DIPHENHYDRAMINE HCL [Concomitant]
     Indication: PREMEDICATION
     Route: 042
  24. NYSTATIN [Concomitant]
     Dosage: AS NEEDED
     Route: 049
     Dates: start: 20120330
  25. VELCADE [Suspect]
     Route: 042
  26. VELCADE [Suspect]
     Dosage: PUSH OVER 3-5 SECONDS
     Route: 042
     Dates: start: 20120319, end: 20120319
  27. METHOTREXATE [Suspect]
     Indication: MANTLE CELL LYMPHOMA
     Route: 065
  28. LOVENOX [Concomitant]
     Indication: THROMBOSIS
     Route: 058
     Dates: start: 20120330
  29. SODIUM CHLORIDE [Concomitant]
     Route: 042
     Dates: start: 20120330
  30. SENOKOT [Concomitant]
     Route: 065
  31. ALLOPURINOL [Concomitant]
     Route: 048
  32. RITUXIMAB [Suspect]
     Indication: MANTLE CELL LYMPHOMA
     Route: 042
  33. DEXAMETHASONE [Suspect]
     Indication: MANTLE CELL LYMPHOMA
     Dosage: ON DAYS 2-5 AND DAYS 12-15
     Route: 048
  34. CIPROFLOXACIN HCL [Concomitant]
     Route: 048
  35. FLUCONAZOLE [Concomitant]
     Route: 048
  36. VELCADE [Suspect]
     Route: 042
     Dates: start: 20111231
  37. VINCRISTINE [Suspect]
     Indication: MANTLE CELL LYMPHOMA
     Dosage: ON DAY 5 AND DAY 12
     Route: 042
  38. LOVENOX [Concomitant]
     Dosage: MONDAY THROUGH FRIDAY
     Route: 058
     Dates: start: 20120329
  39. PREDNISOLONE ACETATE [Concomitant]
     Indication: EYE DISORDER
     Dosage: 03 DAYS
     Route: 047
     Dates: start: 20120330
  40. STOMATOLOGICALS, MOUTH PREPARATIONS [Concomitant]
     Indication: DENTAL DISORDER PROPHYLAXIS
     Dosage: SWISH AND SPLIT
     Route: 048
  41. VALTREX [Concomitant]
     Indication: ANTIVIRAL PROPHYLAXIS
     Dosage: CHRONIC
     Route: 048
     Dates: start: 20120329
  42. ONDANSETRON HCL [Concomitant]
     Dosage: AS NEEDED 01 DAY
     Route: 042
     Dates: start: 20120329

REACTIONS (6)
  - SINUSITIS [None]
  - UPPER RESPIRATORY TRACT INFECTION [None]
  - NEUROPATHY PERIPHERAL [None]
  - URINARY TRACT INFECTION [None]
  - LEUKOCYTOSIS [None]
  - PLEURAL EFFUSION [None]
